FAERS Safety Report 24612031 (Version 1)
Quarter: 2024Q4

REPORT INFORMATION
  Report Type: Report from Study
  Country: US (occurrence: US)
  Receive Date: 20241113
  Receipt Date: 20241113
  Transmission Date: 20250115
  Serious: Yes (Other)
  Sender: ROCHE
  Company Number: US-ROCHE-10000130327

PATIENT
  Age: 48 Year
  Sex: Female

DRUGS (2)
  1. ADO-TRASTUZUMAB EMTANSINE [Suspect]
     Active Substance: ADO-TRASTUZUMAB EMTANSINE
     Indication: Breast cancer metastatic
     Route: 065
  2. MACITENTAN [Concomitant]
     Active Substance: MACITENTAN

REACTIONS (1)
  - Hepatopulmonary syndrome [Recovering/Resolving]
